FAERS Safety Report 8251076 (Version 2)
Quarter: 2012Q4

REPORT INFORMATION
  Report Type: 
  Country: US (occurrence: US)
  Receive Date: 20111117
  Receipt Date: 20121023
  Transmission Date: 20130627
  Serious: No
  Sender: FDA-Public Use
  Company Number: US-AMGEN-USASP2011006062

PATIENT
  Age: 49 Year
  Sex: Female

DRUGS (4)
  1. ENBREL [Suspect]
     Indication: RHEUMATOID ARTHRITIS
     Dosage: 50 mg, qwk
     Dates: start: 2008
  2. ORENCIA [Concomitant]
  3. TREXALL [Concomitant]
     Dosage: 0.8 mg, qwk
     Dates: start: 2008
  4. PLAQUENIL                          /00072602/ [Concomitant]
     Dosage: 200 mg, qwk
     Dates: start: 201111

REACTIONS (9)
  - Vaginal disorder [Unknown]
  - Joint stiffness [Recovered/Resolved]
  - Sneezing [Not Recovered/Not Resolved]
  - Upper-airway cough syndrome [Not Recovered/Not Resolved]
  - Drug effect incomplete [Not Recovered/Not Resolved]
  - Arthralgia [Recovered/Resolved]
  - Injection site urticaria [Recovered/Resolved]
  - Injection site swelling [Not Recovered/Not Resolved]
  - Injection site erythema [Not Recovered/Not Resolved]
